FAERS Safety Report 11222207 (Version 1)
Quarter: 2015Q2

REPORT INFORMATION
  Report Type: Spontaneous
  Country: DE (occurrence: DE)
  Receive Date: 20150626
  Receipt Date: 20150626
  Transmission Date: 20150821
  Serious: Yes (Hospitalization)
  Sender: FDA-Public Use
  Company Number: DE-ELI_LILLY_AND_COMPANY-DE201506005000

PATIENT
  Age: 80 Year
  Sex: Male

DRUGS (3)
  1. HUMALOG [Suspect]
     Active Substance: INSULIN LISPRO
     Indication: DIABETES MELLITUS
     Dosage: UNK, PRN
     Route: 058
  2. HUMINSULIN BASAL [Concomitant]
     Active Substance: INSULIN NOS
  3. HUMINSULIN [Concomitant]

REACTIONS (4)
  - Memory impairment [Not Recovered/Not Resolved]
  - Meningoencephalitis herpetic [Not Recovered/Not Resolved]
  - Loss of consciousness [Unknown]
  - Speech disorder [Not Recovered/Not Resolved]

NARRATIVE: CASE EVENT DATE: 200412
